FAERS Safety Report 9992123 (Version 1)
Quarter: 2014Q1

REPORT INFORMATION
  Report Type: Spontaneous
  Country: US (occurrence: US)
  Receive Date: 20140310
  Receipt Date: 20140310
  Transmission Date: 20141002
  Serious: No
  Sender: FDA-Public Use
  Company Number: US-ASTELLAS-2014US000686

PATIENT
  Sex: Male

DRUGS (1)
  1. XTANDI [Suspect]
     Indication: PRODUCT USED FOR UNKNOWN INDICATION
     Dosage: UNK UNK, UNKNOWN/D
     Route: 065
     Dates: start: 20130727, end: 201312

REACTIONS (1)
  - Prostatic specific antigen increased [Unknown]
